FAERS Safety Report 20716853 (Version 1)
Quarter: 2022Q2

REPORT INFORMATION
  Report Type: Spontaneous
  Country: US (occurrence: US)
  Receive Date: 20220416
  Receipt Date: 20220416
  Transmission Date: 20220721
  Serious: Yes (Death, Life-Threatening, Hospitalization, Other)
  Sender: FDA-Public Use
  Company Number: US-Accord-261158

PATIENT
  Age: 48 Year
  Sex: Male

DRUGS (2)
  1. ETOPOSIDE [Suspect]
     Active Substance: ETOPOSIDE
     Indication: Haemophagocytic lymphohistiocytosis
     Dosage: 75 MG/M2,RENALLY ADJUSTED WAS INITIATED ON DAY 12,
  2. DEXAMETHASONE [Suspect]
     Active Substance: DEXAMETHASONE
     Indication: Haemophagocytic lymphohistiocytosis
     Dosage: 20 MG DAILY

REACTIONS (4)
  - Cardiac arrest [Recovered/Resolved]
  - Tumour lysis syndrome [Fatal]
  - Shock [Fatal]
  - Off label use [Unknown]
